FAERS Safety Report 25227567 (Version 2)
Quarter: 2025Q2

REPORT INFORMATION
  Report Type: Spontaneous
  Country: JP (occurrence: JP)
  Receive Date: 20250422
  Receipt Date: 20250605
  Transmission Date: 20250716
  Serious: Yes (Death, Hospitalization, Other)
  Sender: AMGEN
  Company Number: JP-AMGEN-JPNSP2025078266

PATIENT
  Age: 78 Year
  Sex: Female

DRUGS (1)
  1. OTEZLA [Suspect]
     Active Substance: APREMILAST
     Indication: Psoriasis
     Dosage: 30 MILLIGRAM, BID
     Route: 048
     Dates: start: 20170906, end: 20181107

REACTIONS (1)
  - Anaplastic thyroid cancer [Fatal]

NARRATIVE: CASE EVENT DATE: 20180522
